FAERS Safety Report 21970749 (Version 2)
Quarter: 2023Q1

REPORT INFORMATION
  Report Type: Other
  Country: PK (occurrence: None)
  Receive Date: 20230209
  Receipt Date: 20230223
  Transmission Date: 20230417
  Serious: Yes (Death)
  Sender: FDA-Public Use
  Company Number: PK-ROCHE-3280774

PATIENT
  Age: 30 Year
  Sex: Female

DRUGS (1)
  1. MABTHERA [Suspect]
     Active Substance: RITUXIMAB
     Indication: Diffuse large B-cell lymphoma
     Dosage: MABTHERA SC FOR 8 CYCLES IN DLBCL INDICATION -AS PER PROTOCOL
     Route: 058
     Dates: start: 20221024, end: 20221217

REACTIONS (1)
  - Death [Fatal]

NARRATIVE: CASE EVENT DATE: 20221222
